FAERS Safety Report 5214490-8 (Version None)
Quarter: 2006Q4

REPORT INFORMATION
  Report Type: 
  Country: None (occurrence: None)
  Receive Date: 20061107
  Receipt Date: 20060808
  Transmission Date: 20070319
  Serious: No
  Sender: FDA-Public Use
  Company Number: 200615017BWH

PATIENT
  Age: 43 Year
  Sex: Male

DRUGS (5)
  1. LEVITRA [Suspect]
     Indication: ERECTILE DYSFUNCTION
     Dosage: SEE IMAGE, ORAL
     Route: 048
  2. CYMBALTA [Concomitant]
  3. CLARITIN [Concomitant]
  4. TRAMADOL HCL [Concomitant]
  5. CELEBREX [Concomitant]

REACTIONS (3)
  - ERECTILE DYSFUNCTION [None]
  - HEADACHE [None]
  - NASAL CONGESTION [None]
